FAERS Safety Report 9028633 (Version 2)
Quarter: 2013Q1

REPORT INFORMATION
  Report Type: Spontaneous
  Country: US (occurrence: US)
  Receive Date: 20130124
  Receipt Date: 20130211
  Transmission Date: 20140127
  Serious: Yes (Death)
  Sender: FDA-Public Use
  Company Number: US-ELI_LILLY_AND_COMPANY-US201301007949

PATIENT
  Sex: Female

DRUGS (4)
  1. GEMZAR [Suspect]
     Indication: OVARIAN CANCER
     Dosage: 1200 MG, SINGLE
     Dates: start: 20121210, end: 20121210
  2. SANCUSO [Concomitant]
  3. NEUPOGEN [Concomitant]
  4. NEULASTA [Concomitant]

REACTIONS (1)
  - Malignant neoplasm progression [Fatal]
